FAERS Safety Report 4282416-X (Version None)
Quarter: 2004Q1

REPORT INFORMATION
  Report Type: 
  Country: None (occurrence: None)
  Receive Date: 20040112
  Receipt Date: 20031031
  Transmission Date: 20041129
  Serious: No
  Sender: FDA-Public Use
  Company Number: PHEH2003US08259

PATIENT
  Age: 43 Year
  Sex: Female

DRUGS (1)
  1. ELIDEL [Suspect]
     Indication: ECZEMA
     Dosage: PRN, TOPICAL
     Route: 061
     Dates: start: 20030701, end: 20030907

REACTIONS (6)
  - EYE IRRITATION [None]
  - EYE REDNESS [None]
  - EYE SWELLING [None]
  - MADAROSIS [None]
  - PRURITUS [None]
  - SKIN BURNING SENSATION [None]
